FAERS Safety Report 17444601 (Version 2)
Quarter: 2020Q1

REPORT INFORMATION
  Report Type: Spontaneous
  Country: US (occurrence: US)
  Receive Date: 20200221
  Receipt Date: 20200328
  Transmission Date: 20200409
  Serious: No
  Sender: FDA-Public Use
  Company Number: US-ASTRAZENECA-2020SE21839

PATIENT
  Sex: Male
  Weight: 86.2 kg

DRUGS (5)
  1. LORAZEPAM. [Concomitant]
     Active Substance: LORAZEPAM
     Indication: PANIC ATTACK
     Dosage: 0.5MG AS REQUIRED
     Route: 048
  2. CLINIDINE [Concomitant]
     Indication: HYPERTENSION
     Route: 062
     Dates: start: 2019
  3. SYMBICORT [Suspect]
     Active Substance: BUDESONIDE\FORMOTEROL FUMARATE DIHYDRATE
     Indication: CHRONIC OBSTRUCTIVE PULMONARY DISEASE
     Dosage: 160/4.5, 2 INHALATIONS BY MOUTH, TWO TIMES A DAY.
     Route: 055
  4. METOPROLOL SUCCINATE. [Suspect]
     Active Substance: METOPROLOL SUCCINATE
     Indication: HYPERTENSION
     Route: 048
  5. AMLODIPINE [Concomitant]
     Active Substance: AMLODIPINE BESYLATE
     Indication: HYPERTENSION
     Route: 048

REACTIONS (6)
  - Device issue [Unknown]
  - Drug ineffective [Unknown]
  - Dyspnoea [Unknown]
  - Wheezing [Unknown]
  - Panic attack [Unknown]
  - Wrong technique in device usage process [Unknown]
